FAERS Safety Report 17840665 (Version 4)
Quarter: 2020Q2

REPORT INFORMATION
  Report Type: Spontaneous
  Country: US (occurrence: US)
  Receive Date: 20200529
  Receipt Date: 20200619
  Transmission Date: 20200714
  Serious: Yes (Hospitalization, Other)
  Sender: FDA-Public Use
  Company Number: US-GILEAD-2020-0469108

PATIENT
  Age: 27 Year
  Sex: Male
  Weight: 74.8 kg

DRUGS (3)
  1. EPCLUSA [Suspect]
     Active Substance: SOFOSBUVIR\VELPATASVIR
     Indication: CHRONIC HEPATITIS C
     Dosage: 1 DOSAGE FORM
     Route: 048
     Dates: start: 20200410
  2. KAVA KAVA [PIPER METHYSTICUM ROOT] [Concomitant]
  3. ASHWAGANDHA [WITHANIA SOMNIFERA ROOT] [Concomitant]

REACTIONS (6)
  - Rhabdomyolysis [Recovered/Resolved]
  - Intentional dose omission [Recovered/Resolved]
  - Pneumonia aspiration [Recovered/Resolved]
  - Overdose [Recovered/Resolved]
  - Acute kidney injury [Recovered/Resolved]
  - Drug abuser [Unknown]

NARRATIVE: CASE EVENT DATE: 20200517
